FAERS Safety Report 8455144-4 (Version None)
Quarter: 2012Q2

REPORT INFORMATION
  Report Type: 
  Country: None (occurrence: None)
  Receive Date: 20120621
  Receipt Date: 20120613
  Transmission Date: 20120825
  Serious: Yes (Hospitalization)
  Sender: FDA-Public Use
  Company Number: TW-SANOFI-AVENTIS-2012SA040285

PATIENT
  Age: 44 Year
  Sex: Female
  Weight: 51 kg

DRUGS (5)
  1. RIFATER [Suspect]
     Indication: TUBERCULOSIS
     Route: 048
     Dates: start: 20120213, end: 20120220
  2. ETHAMBUTOL HYDROCHLORIDE [Suspect]
     Indication: TUBERCULOSIS
     Route: 048
  3. RIFAMPIN AND ISONIAZID [Suspect]
     Indication: TUBERCULOSIS
     Route: 048
  4. PYRAZINAMIDE [Suspect]
     Indication: TUBERCULOSIS
     Route: 048
     Dates: start: 20120303, end: 20120404
  5. ISONIAZID/PYRIDOXINE [Suspect]
     Indication: TUBERCULOSIS
     Route: 048

REACTIONS (1)
  - STEVENS-JOHNSON SYNDROME [None]
